FAERS Safety Report 13586450 (Version 1)
Quarter: 2017Q2

REPORT INFORMATION
  Report Type: Spontaneous
  Country: US (occurrence: US)
  Receive Date: 20170525
  Receipt Date: 20170525
  Transmission Date: 20170830
  Serious: No
  Sender: FDA-Public Use
  Company Number: None

PATIENT
  Age: 57 Year
  Sex: Female

DRUGS (1)
  1. COPAXONE [Suspect]
     Active Substance: GLATIRAMER ACETATE

REACTIONS (6)
  - Headache [None]
  - White blood cell count decreased [None]
  - Chills [None]
  - Nausea [None]
  - Hepatic enzyme increased [None]
  - Malignant melanoma stage IV [None]

NARRATIVE: CASE EVENT DATE: 20170511
